FAERS Safety Report 4385366-3 (Version None)
Quarter: 2004Q2

REPORT INFORMATION
  Report Type: 
  Country: None (occurrence: None)
  Receive Date: 20040622
  Receipt Date: 20040609
  Transmission Date: 20050107
  Serious: Yes (Death)
  Sender: FDA-Public Use
  Company Number: US-JNJFOC-20040602905

PATIENT
  Age: 88 Year
  Sex: Male

DRUGS (14)
  1. ULTRACET [Suspect]
     Dosage: ORAL
     Route: 048
     Dates: start: 20030903
  2. LASIX [Concomitant]
  3. AMBIEN [Concomitant]
  4. ADVAIR (SERETIDE MITE) [Concomitant]
  5. SINGULAIR [Concomitant]
  6. COLCHICINE [Concomitant]
  7. LIPITOR [Concomitant]
  8. COZAAR [Concomitant]
  9. NEXIUM [Concomitant]
  10. ALBUTEROL [Concomitant]
  11. FLAVIX (CLOPIDOGREL SULFATE) [Concomitant]
  12. NORVASC [Concomitant]
  13. ISOSORBIDE MONONITRATE (ISOSORBIDE) [Concomitant]
  14. ALLOPURINOL [Concomitant]

REACTIONS (1)
  - PNEUMONIA [None]
